FAERS Safety Report 8168474-0 (Version None)
Quarter: 2012Q1

REPORT INFORMATION
  Report Type: 
  Country: None (occurrence: None)
  Receive Date: 20120103
  Receipt Date: 20111121
  Transmission Date: 20120608
  Serious: No
  Sender: FDA-Public Use
  Company Number: AE-2011-002915

PATIENT
  Age: 64 Year
  Sex: Male

DRUGS (3)
  1. PEGASYS [Concomitant]
  2. INCIVEK [Suspect]
     Dosage: 2250 DOSAGE FORMS (750 DOSAGE FORMS, 3 IN 1 D), ORAL
     Route: 048
     Dates: start: 20110801
  3. RIBAVIRIN [Concomitant]

REACTIONS (1)
  - RASH VESICULAR [None]
